FAERS Safety Report 19109069 (Version 1)
Quarter: 2021Q2

REPORT INFORMATION
  Report Type: Spontaneous
  Country: IT (occurrence: IT)
  Receive Date: 20210408
  Receipt Date: 20210408
  Transmission Date: 20210717
  Serious: Yes (Other)
  Sender: FDA-Public Use
  Company Number: IT-PFIZER INC-2021335929

PATIENT
  Age: 76 Year
  Sex: Female

DRUGS (3)
  1. HEPARIN SODIUM. [Suspect]
     Active Substance: HEPARIN SODIUM
     Dosage: UNK
  2. VERAPAMIL [Suspect]
     Active Substance: VERAPAMIL HYDROCHLORIDE
     Dosage: UNK
  3. ENOXAPARIN [Suspect]
     Active Substance: ENOXAPARIN
     Dosage: UNK

REACTIONS (1)
  - Haemodynamic instability [Recovering/Resolving]
